FAERS Safety Report 8378082-4 (Version None)
Quarter: 2012Q2

REPORT INFORMATION
  Report Type: 
  Country: None (occurrence: None)
  Receive Date: 20120522
  Receipt Date: 20120515
  Transmission Date: 20120825
  Serious: Yes (Other)
  Sender: FDA-Public Use
  Company Number: FR-BAXTER-2012BAX005548

PATIENT
  Sex: Female

DRUGS (5)
  1. NEULASTA [Concomitant]
  2. ONCOVIN [Suspect]
     Indication: B-CELL LYMPHOMA STAGE III
     Dosage: 1 DOSE
     Route: 042
     Dates: start: 20111205, end: 20120228
  3. MABTHERA [Suspect]
     Indication: B-CELL LYMPHOMA STAGE III
     Dosage: 1 DOSE
     Route: 042
     Dates: start: 20111205, end: 20120502
  4. CYCLOPHOSPHAMIDE [Suspect]
     Indication: B-CELL LYMPHOMA STAGE III
     Dosage: 1 DOSE
     Route: 042
     Dates: start: 20111205, end: 20120228
  5. DOXORUBICIN HCL [Suspect]
     Indication: B-CELL LYMPHOMA STAGE III
     Dosage: 1 DOSE
     Route: 042
     Dates: start: 20111205, end: 20120228

REACTIONS (3)
  - MAJOR DEPRESSION [None]
  - ANAEMIA [None]
  - PARAESTHESIA [None]
